FAERS Safety Report 6627617-8 (Version None)
Quarter: 2010Q1

REPORT INFORMATION
  Report Type: 
  Country: None (occurrence: None)
  Receive Date: 20100311
  Receipt Date: 20100125
  Transmission Date: 20100710
  Serious: No
  Sender: FDA-Public Use
  Company Number: US-KINGPHARMUSA00001-K201000089

PATIENT
  Age: 42 Year
  Sex: Male
  Weight: 77.098 kg

DRUGS (10)
  1. EMBEDA [Suspect]
     Indication: PAIN
     Dosage: 60 MG, QAM
     Route: 048
     Dates: start: 20091009, end: 20100124
  2. GABAPENTIN [Concomitant]
     Indication: AMYOTROPHIC LATERAL SCLEROSIS
     Dosage: UNK
  3. CYMBALTA [Concomitant]
     Indication: PAIN
     Dosage: 1 DF, BID
  4. FOLIC ACID [Concomitant]
     Dosage: UNK
  5. NAPRELAN [Concomitant]
     Indication: PAIN
     Dosage: 750 MG, QD
  6. AMBIEN CR [Concomitant]
     Indication: SLEEP DISORDER
     Dosage: 12.5 MG, PRN
  7. SIMVASTATIN [Concomitant]
     Indication: BLOOD CHOLESTEROL INCREASED
     Dosage: UNK
  8. SKELAXIN [Concomitant]
     Indication: MUSCLE RELAXANT THERAPY
     Dosage: UNK
  9. OPANA [Concomitant]
     Indication: BREAKTHROUGH PAIN
     Dosage: 10 MG, PRN
  10. ARMODAFINIL [Concomitant]
     Indication: PAIN
     Dosage: 150 MG, QD

REACTIONS (6)
  - FEELING ABNORMAL [None]
  - FEELING HOT [None]
  - HYPERHIDROSIS [None]
  - MUSCLE SPASMS [None]
  - SOMNOLENCE [None]
  - WITHDRAWAL SYNDROME [None]
